FAERS Safety Report 24769796 (Version 1)
Quarter: 2024Q4

REPORT INFORMATION
  Report Type: Spontaneous
  Country: US (occurrence: US)
  Receive Date: 20241224
  Receipt Date: 20241224
  Transmission Date: 20250114
  Serious: No
  Sender: CELLTRION
  Company Number: US-CELLTRION INC.-2024US000752

PATIENT

DRUGS (2)
  1. TRUXIMA [Suspect]
     Active Substance: RITUXIMAB-ABBS
     Indication: Chronic lymphocytic inflammation with pontine perivascular enhancement responsive to steroids
     Dosage: DAY 1 AND DAY 14 EVERY 6 MONTHS
     Dates: end: 202201
  2. TRUXIMA [Suspect]
     Active Substance: RITUXIMAB-ABBS
     Dosage: DAY 1 AND DAY 14 EVERY 6 MONTHS
     Dates: start: 202301

REACTIONS (6)
  - Feeling abnormal [Recovered/Resolved]
  - Fatigue [Recovered/Resolved]
  - Influenza like illness [Recovered/Resolved]
  - Nausea [Recovered/Resolved]
  - Maternal exposure during breast feeding [Not Recovered/Not Resolved]
  - Intentional product use issue [Unknown]
